FAERS Safety Report 8810383 (Version 6)
Quarter: 2014Q1

REPORT INFORMATION
  Report Type: Spontaneous
  Country: US (occurrence: US)
  Receive Date: 20120926
  Receipt Date: 20140205
  Transmission Date: 20141002
  Serious: Yes (Hospitalization, Other)
  Sender: FDA-Public Use
  Company Number: US-009507513-1209USA007125

PATIENT
  Sex: Female

DRUGS (2)
  1. FOSAMAX [Suspect]
     Indication: OSTEOPOROSIS
     Dosage: 10 MG, UNK
     Route: 048
     Dates: start: 1997, end: 20070324
  2. FOSAMAX [Suspect]
     Dosage: 70 MG, UNK
     Route: 048
     Dates: end: 20070324

REACTIONS (42)
  - Femur fracture [Recovering/Resolving]
  - Intramedullary rod insertion [Unknown]
  - Intramedullary rod insertion [Unknown]
  - Device related infection [Unknown]
  - Bone debridement [Unknown]
  - Staphylococcal infection [Unknown]
  - Removal of internal fixation [Unknown]
  - Infection [Unknown]
  - Knee arthroplasty [Unknown]
  - Nasal operation [Unknown]
  - Femur fracture [Unknown]
  - Hip arthroplasty [Unknown]
  - Anaemia postoperative [Unknown]
  - Intramedullary rod insertion [Unknown]
  - Femur fracture [Recovering/Resolving]
  - Toe operation [Unknown]
  - Diverticulum [Unknown]
  - Epistaxis [Unknown]
  - Urinary tract infection [Unknown]
  - Angina pectoris [Unknown]
  - Abscess drainage [Unknown]
  - Appendicectomy [Unknown]
  - Tremor [Unknown]
  - Nephrolithiasis [Unknown]
  - Bradycardia [Unknown]
  - Kyphosis [Unknown]
  - QRS axis abnormal [Unknown]
  - Spinal fracture [Unknown]
  - Osteoarthritis [Unknown]
  - Osteoarthritis [Unknown]
  - Compression fracture [Unknown]
  - Spondylolisthesis [Unknown]
  - Phlebolith [Unknown]
  - Nephrolithiasis [Unknown]
  - Spinal osteoarthritis [Unknown]
  - Tonsillectomy [Unknown]
  - Haemorrhoid operation [Unknown]
  - Rectal polypectomy [Unknown]
  - Skin lesion excision [Recovered/Resolved]
  - Blister [Unknown]
  - Joint injury [Unknown]
  - Post procedural haemorrhage [Recovering/Resolving]
